FAERS Safety Report 16848860 (Version 6)
Quarter: 2023Q4

REPORT INFORMATION
  Report Type: Spontaneous
  Country: US (occurrence: US)
  Receive Date: 20190925
  Receipt Date: 20231222
  Transmission Date: 20240110
  Serious: Yes (Death, Hospitalization, Other)
  Sender: FDA-Public Use
  Company Number: US-GILEAD-2019-0429575

PATIENT
  Age: 47 Year
  Sex: Female

DRUGS (14)
  1. TRUVADA [Suspect]
     Active Substance: EMTRICITABINE\TENOFOVIR DISOPROXIL FUMARATE
     Indication: HIV infection
     Dosage: UNK
     Route: 048
     Dates: start: 2012, end: 20190506
  2. VIREAD [Suspect]
     Active Substance: TENOFOVIR DISOPROXIL FUMARATE
     Indication: HIV infection
     Dosage: UNK
     Route: 048
     Dates: start: 2012, end: 20190506
  3. ACETAMINOPHEN [Concomitant]
     Active Substance: ACETAMINOPHEN
  4. COREG [Concomitant]
     Active Substance: CARVEDILOL
  5. SENSIPAR [Concomitant]
     Active Substance: CINACALCET HYDROCHLORIDE
  6. CATAPRES [Concomitant]
     Active Substance: CLONIDINE HYDROCHLORIDE
  7. LISINOPRIL [Concomitant]
     Active Substance: LISINOPRIL
  8. VANCOMYCIN [Concomitant]
     Active Substance: VANCOMYCIN
  9. EMTRIVA [Concomitant]
     Active Substance: EMTRICITABINE
  10. EPIVIR [Concomitant]
     Active Substance: LAMIVUDINE
  11. NORVIR [Concomitant]
     Active Substance: RITONAVIR
  12. PREZISTA [Concomitant]
     Active Substance: DARUNAVIR ETHANOLATE
  13. TIVICAY [Concomitant]
     Active Substance: DOLUTEGRAVIR SODIUM
  14. ZIAGEN [Concomitant]
     Active Substance: ABACAVIR SULFATE

REACTIONS (10)
  - Renal failure [Fatal]
  - Chronic kidney disease [Fatal]
  - End stage renal disease [Fatal]
  - Renal impairment [Not Recovered/Not Resolved]
  - Economic problem [Not Recovered/Not Resolved]
  - Emotional distress [Not Recovered/Not Resolved]
  - Anhedonia [Not Recovered/Not Resolved]
  - Anxiety [Not Recovered/Not Resolved]
  - Pain [Not Recovered/Not Resolved]
  - Anaemia of chronic disease [Recovered/Resolved]

NARRATIVE: CASE EVENT DATE: 20120101
